FAERS Safety Report 18028060 (Version 2)
Quarter: 2020Q4

REPORT INFORMATION
  Report Type: Report from Study
  Country: DE (occurrence: DE)
  Receive Date: 20200716
  Receipt Date: 20201205
  Transmission Date: 20210113
  Serious: Yes (Death, Other)
  Sender: FDA-Public Use
  Company Number: DE-ACCORD-189676

PATIENT
  Sex: Male

DRUGS (40)
  1. IBUPROFEN. [Concomitant]
     Active Substance: IBUPROFEN
     Indication: PRODUCT USED FOR UNKNOWN INDICATION
     Dosage: 600 MILLIGRAM, TID
     Route: 065
     Dates: start: 201904, end: 20190505
  2. OXYCODONE [Concomitant]
     Active Substance: OXYCODONE
     Indication: PRODUCT USED FOR UNKNOWN INDICATION
     Dosage: 1 DOSAGE FORM
     Route: 065
     Dates: start: 20190511
  3. CLINDAMYCIN. [Concomitant]
     Active Substance: CLINDAMYCIN
     Indication: PROPHYLAXIS
     Dosage: 1 DOSAGE FORM
     Route: 042
     Dates: start: 20190510, end: 20190512
  4. PARACETAMOL [Concomitant]
     Active Substance: ACETAMINOPHEN
     Indication: PROPHYLAXIS
     Dosage: 1000 MILLIGRAM, QD
     Route: 065
     Dates: start: 20190218, end: 20190218
  5. BISOPROLOL [Concomitant]
     Active Substance: BISOPROLOL
     Indication: CEREBROVASCULAR DISORDER
     Dosage: 5 MILLIGRAM, BID
     Route: 065
     Dates: start: 201904, end: 20190506
  6. NALOXONE HYDROCHLORIDE/OXYCODONE HYDROCHLORIDE [Concomitant]
     Active Substance: NALOXONE HYDROCHLORIDE\OXYCODONE HYDROCHLORIDE
     Indication: PRODUCT USED FOR UNKNOWN INDICATION
     Dosage: UNK, 20/20/10 MG
     Route: 065
     Dates: start: 20190511, end: 20190513
  7. DIMETINDENE MALEATE [Concomitant]
     Active Substance: DIMETHINDENE MALEATE
     Indication: PROPHYLAXIS
     Dosage: 4 MILLIGRAM, QD
     Route: 065
     Dates: start: 20190218, end: 20190218
  8. FLUOROURACIL. [Suspect]
     Active Substance: FLUOROURACIL
     Indication: PRODUCT USED FOR UNKNOWN INDICATION
     Route: 065
  9. MACROGOL/MACROGOL STEARATE [Concomitant]
     Active Substance: POLYETHYLENE GLYCOLS
     Indication: PRODUCT USED FOR UNKNOWN INDICATION
     Dosage: 1 DOSAGE FORM
     Route: 065
  10. TILIDIN [Concomitant]
     Active Substance: NALOXONE HYDROCHLORIDE\TILIDINE HYDROCHLORIDE
     Indication: PRODUCT USED FOR UNKNOWN INDICATION
     Dosage: 100 MILLIGRAM, BID
     Route: 065
     Dates: end: 201904
  11. AMIODARONE [Concomitant]
     Active Substance: AMIODARONE
     Indication: CARDIOVASCULAR DISORDER
     Dosage: 200 MILLIGRAM
     Route: 065
  12. NIVOLUMAB [Suspect]
     Active Substance: NIVOLUMAB
     Indication: SQUAMOUS CELL CARCINOMA OF HEAD AND NECK
     Dosage: 250 MILLIGRAM, Q2WK
     Route: 042
     Dates: start: 20190218, end: 20190502
  13. GRANISETRON [Concomitant]
     Active Substance: GRANISETRON
     Indication: PROPHYLAXIS
     Dosage: 3 MILLIGRAM
     Route: 065
     Dates: start: 20190506
  14. OXYCODONE HYDROCHLORIDE / NALOXONE HYDROCHLORIDE DIHYDRATE [Concomitant]
     Indication: PRODUCT USED FOR UNKNOWN INDICATION
     Dosage: 1 DOSAGE FORM, BID
     Route: 065
     Dates: start: 201904
  15. STEROFUNDIN [Concomitant]
     Active Substance: CALCIUM CHLORIDE\MAGNESIUM CHLORIDE\POTASSIUM CHLORIDE\SODIUM ACETATE\SODIUM CHLORIDE
     Indication: PROPHYLAXIS
     Dosage: 500 MILLILITER
     Route: 065
     Dates: start: 20190506
  16. KABIVEN [Concomitant]
     Active Substance: AMINO ACIDS\ANHYDROUS DEXTROSE\CALCIUM CHLORIDE\MAGNESIUM SULFATE HEPTAHYDRATE\POTASSIUM CHLORIDE\SODIUM ACETATE\SODIUM GLYCEROPHOSPHATE ANHYDROUS\SOYBEAN OIL
     Indication: MALIGNANT NEOPLASM PROGRESSION
     Dosage: 1 DOSAGE FORM
     Route: 065
     Dates: start: 20190506, end: 20190513
  17. NIVOLUMAB [Suspect]
     Active Substance: NIVOLUMAB
     Indication: SQUAMOUS CELL CARCINOMA OF HEAD AND NECK
     Dosage: 3 MILLIGRAM/KILOGRAM, Q2WK
     Route: 042
  18. DIMETINDENE MALEATE [Concomitant]
     Active Substance: DIMETHINDENE MALEATE
     Indication: PROPHYLAXIS
     Dosage: 4 MILLIGRAM, QD
     Route: 065
     Dates: start: 20190225, end: 20190225
  19. CISPLATIN. [Suspect]
     Active Substance: CISPLATIN
     Indication: PRODUCT USED FOR UNKNOWN INDICATION
     Route: 065
  20. BISOPROLOL [Concomitant]
     Active Substance: BISOPROLOL
     Indication: CEREBROVASCULAR DISORDER
     Dosage: 2.5 MILLIGRAM, BID
     Route: 065
     Dates: end: 201904
  21. NIVOLUMAB [Suspect]
     Active Substance: NIVOLUMAB
     Indication: SQUAMOUS CELL CARCINOMA OF HEAD AND NECK
     Dosage: 240 MILLIGRAM, Q2WK
     Route: 042
     Dates: start: 20190218, end: 20190423
  22. RAMIPRIL. [Concomitant]
     Active Substance: RAMIPRIL
     Indication: CARDIOVASCULAR DISORDER
     Dosage: 2.5 MILLIGRAM, BID
     Route: 065
     Dates: end: 20190513
  23. ARCOXIA [Concomitant]
     Active Substance: ETORICOXIB
     Indication: PRODUCT USED FOR UNKNOWN INDICATION
     Dosage: 90 MILLIGRAM, QD
     Route: 065
     Dates: end: 201904
  24. RETINOL [Concomitant]
     Active Substance: RETINOL
     Indication: PRODUCT USED FOR UNKNOWN INDICATION
     Dosage: 1 DOSAGE FORM, EVERY 2 DAYS
     Route: 065
     Dates: start: 20190513
  25. FENISTIL [Concomitant]
     Active Substance: DIMETHINDENE
     Indication: PROPHYLAXIS
     Dosage: 1 DOSAGE FORM
     Route: 065
     Dates: end: 20190506
  26. ARGININE/ALANINE/ASPARTIC ACID/CALCIUM CHLORIDE DIHYDRATE/GLUTAMIC ACID/GLYCINE/GLYCINE MAX SEED OIL [Concomitant]
     Indication: MALIGNANT NEOPLASM PROGRESSION
     Dosage: 1 DOSAGE FORM
     Route: 065
     Dates: start: 20190514
  27. CETUXIMAB. [Suspect]
     Active Substance: CETUXIMAB
     Indication: PRODUCT USED FOR UNKNOWN INDICATION
     Dosage: 678 MICROGRAM
     Route: 065
     Dates: start: 20190506, end: 20190506
  28. MANNIT [Concomitant]
     Indication: PROPHYLAXIS
     Dosage: 250 MILLILITER
     Route: 065
     Dates: start: 20190506
  29. PARACETAMOL [Concomitant]
     Active Substance: ACETAMINOPHEN
     Indication: PROPHYLAXIS
     Dosage: 1000 MILLIGRAM, QD
     Route: 065
     Dates: start: 20190225, end: 20190225
  30. ERGOCALCIFEROL/PHYTOMENADIONE/RETINOL PALMITATE/TOCOPHERYL ACETATE [Concomitant]
     Indication: MALIGNANT NEOPLASM PROGRESSION
     Dosage: 1 DOSAGE FORM, QOD, ALLE 2TAGE (EVERY 2 DAYS)
     Route: 065
     Dates: start: 20190513
  31. EMEND [Concomitant]
     Active Substance: APREPITANT
     Indication: PROPHYLAXIS
     Dosage: 125 MILLIGRAM
     Route: 065
     Dates: start: 20190506, end: 20190506
  32. PANTOZOL [Concomitant]
     Active Substance: PANTOPRAZOLE SODIUM
     Indication: PROPHYLAXIS
     Dosage: 20 MILLIGRAM, QD
     Route: 065
     Dates: start: 201905
  33. XARELTO [Concomitant]
     Active Substance: RIVAROXABAN
     Indication: CEREBROVASCULAR DISORDER
     Dosage: 20 MILLIGRAM, QD
     Route: 065
  34. PANTOZOL [Concomitant]
     Active Substance: PANTOPRAZOLE SODIUM
     Indication: PROPHYLAXIS
     Dosage: 20 MILLIGRAM, QD
     Route: 065
     Dates: start: 20190218, end: 20190218
  35. DEXAMETHASONE. [Concomitant]
     Active Substance: DEXAMETHASONE
     Indication: PROPHYLAXIS
     Dosage: 8 MILLIGRAM
     Route: 065
     Dates: start: 20190506
  36. RANITIC [Concomitant]
     Active Substance: RANITIDINE HYDROCHLORIDE
     Indication: PROPHYLAXIS
     Dosage: 50 MILLIGRAM
     Route: 065
     Dates: start: 20190506, end: 20190506
  37. DIMETINDENE [Concomitant]
     Active Substance: DIMETHINDENE
     Indication: PROPHYLAXIS
     Dosage: 4 MILLIGRAM, QD
     Route: 065
     Dates: start: 20190311, end: 20190311
  38. NOVALGIN [Concomitant]
     Indication: MALIGNANT NEOPLASM PROGRESSION
     Dosage: UNK, 4X30MG
     Route: 065
     Dates: start: 20190507, end: 20190513
  39. PANTOZOL [Concomitant]
     Active Substance: PANTOPRAZOLE SODIUM
     Indication: PROPHYLAXIS
     Dosage: 20 UNK
     Route: 065
     Dates: start: 201904
  40. NALOXONE HYDROCHLORIDE/OXYCODONE HYDROCHLORIDE [Concomitant]
     Active Substance: NALOXONE HYDROCHLORIDE\OXYCODONE HYDROCHLORIDE
     Indication: PRODUCT USED FOR UNKNOWN INDICATION
     Dosage: 1 DOSAGE FORM, TID
     Route: 065
     Dates: start: 201904

REACTIONS (13)
  - Spinal pain [Not Recovered/Not Resolved]
  - Rash [Recovered/Resolved]
  - Asthenia [Recovered/Resolved]
  - Pleural effusion [Not Recovered/Not Resolved]
  - Blood pressure increased [Recovered/Resolved]
  - Pathological fracture [Not Recovered/Not Resolved]
  - Tumour pseudoprogression [Not Recovered/Not Resolved]
  - Constipation [Not Recovered/Not Resolved]
  - Malignant neoplasm progression [Fatal]
  - Blood creatinine increased [Unknown]
  - Blood sodium decreased [Not Recovered/Not Resolved]
  - Chills [Recovered/Resolved]
  - Clavicle fracture [Not Recovered/Not Resolved]

NARRATIVE: CASE EVENT DATE: 201903
